FAERS Safety Report 23335997 (Version 1)
Quarter: 2023Q4

REPORT INFORMATION
  Report Type: Spontaneous
  Country: CN (occurrence: CN)
  Receive Date: 20231225
  Receipt Date: 20231225
  Transmission Date: 20240110
  Serious: Yes (Hospitalization, Other)
  Sender: FDA-Public Use
  Company Number: CN-SA-SAC20231222000484

PATIENT
  Age: 71 Year
  Sex: Female
  Weight: 63 kg

DRUGS (3)
  1. CLOPIDOGREL BISULFATE [Suspect]
     Active Substance: CLOPIDOGREL BISULFATE
     Indication: Cerebral infarction
     Dosage: 75MG, QD
     Route: 048
     Dates: start: 20231211, end: 20231218
  2. ASPIRIN [Suspect]
     Active Substance: ASPIRIN
     Indication: Cerebral infarction
     Dosage: 300 MG, AND AFTER THE ADMINISTRATION TWICE, IT WAS CHANGED TO 100 MG QD PO,
     Route: 048
  3. ASPIRIN [Suspect]
     Active Substance: ASPIRIN
     Dosage: 100MG, QD
     Route: 048
     Dates: start: 20231211, end: 20231218

REACTIONS (4)
  - Muscular weakness [Recovering/Resolving]
  - Vaginal haemorrhage [Recovering/Resolving]
  - Haemorrhage [Recovering/Resolving]
  - Vaginal wall congestion [Recovering/Resolving]

NARRATIVE: CASE EVENT DATE: 20231213
